FAERS Safety Report 24447228 (Version 2)
Quarter: 2024Q4

REPORT INFORMATION
  Report Type: Spontaneous
  Country: US (occurrence: US)
  Receive Date: 20241016
  Receipt Date: 20241110
  Transmission Date: 20250114
  Serious: No
  Sender: SANOFI AVENTIS
  Company Number: US-SA-2024SA294981

PATIENT
  Age: 70 Year
  Sex: Male

DRUGS (4)
  1. DUPIXENT [Suspect]
     Active Substance: DUPILUMAB
     Indication: Dermatitis atopic
     Dosage: 300 MG, QOW
     Route: 058
  2. ROSUVASTATIN [Concomitant]
     Active Substance: ROSUVASTATIN
     Dosage: UNK
  3. SYNTHROID [Concomitant]
     Active Substance: LEVOTHYROXINE SODIUM
     Dosage: UNK
  4. OLMESARTAN [Concomitant]
     Active Substance: OLMESARTAN

REACTIONS (13)
  - Gastrointestinal motility disorder [Unknown]
  - Ear discomfort [Unknown]
  - Tooth disorder [Unknown]
  - Jaw disorder [Unknown]
  - Dry skin [Unknown]
  - Anxiety [Unknown]
  - Proctalgia [Unknown]
  - Insomnia [Unknown]
  - Musculoskeletal pain [Unknown]
  - Oropharyngeal pain [Unknown]
  - Skin exfoliation [Unknown]
  - Rash [Unknown]
  - Arthralgia [Unknown]

NARRATIVE: CASE EVENT DATE: 20240101
